FAERS Safety Report 14719218 (Version 2)
Quarter: 2019Q1

REPORT INFORMATION
  Report Type: Report from Study
  Country: DE (occurrence: DE)
  Receive Date: 20180405
  Receipt Date: 20190211
  Transmission Date: 20190417
  Serious: Yes (Hospitalization)
  Sender: FDA-Public Use
  Company Number: DE-AMGEN-DEUNI2018045355

PATIENT
  Age: 54 Year
  Sex: Female

DRUGS (4)
  1. ENBREL [Suspect]
     Active Substance: ETANERCEPT
     Dosage: 50 MG, 1XWEEKLY, SWITCH FROM PEN TO FERTIGSPRITZE ON 28MAR2018
     Route: 065
     Dates: start: 20180328
  2. NOVAMIN [Concomitant]
     Dosage: 2 DF, TID
  3. ENBREL [Suspect]
     Active Substance: ETANERCEPT
     Indication: RHEUMATOID ARTHRITIS
     Dosage: SWITCH FROM PEN TO FERTIGSPRITZE ON 28MAR2018
     Route: 065
     Dates: start: 20160422
  4. NOVAMIN [Concomitant]
     Dosage: 2 DF, 3X/DAY

REACTIONS (3)
  - Cerebrovascular accident [Unknown]
  - Condition aggravated [Not Recovered/Not Resolved]
  - Depressed mood [Not Recovered/Not Resolved]

NARRATIVE: CASE EVENT DATE: 201803
